FAERS Safety Report 19813620 (Version 3)
Quarter: 2021Q3

REPORT INFORMATION
  Report Type: Other
  Country: US (occurrence: US)
  Receive Date: 20210909
  Receipt Date: 20210929
  Transmission Date: 20211014
  Serious: Yes (Hospitalization)
  Sender: FDA-Public Use
  Company Number: US-ROCHE-2907576

PATIENT
  Sex: Male

DRUGS (1)
  1. OCREVUS [Suspect]
     Active Substance: OCRELIZUMAB
     Indication: RELAPSING MULTIPLE SCLEROSIS
     Dosage: 600 MG ONCE IN SIX MONTHS?DATE OF TREATMENT ?ON 31/JAN/2019, 17/JUL/2019, 22/JAN/2020, 20/JUL/2020,
     Route: 065
     Dates: start: 20190117

REACTIONS (1)
  - COVID-19 [Not Recovered/Not Resolved]
